FAERS Safety Report 6983559-X (Version None)
Quarter: 2010Q3

REPORT INFORMATION
  Report Type: 
  Country: None (occurrence: None)
  Receive Date: 20100914
  Receipt Date: 20081014
  Transmission Date: 20110219
  Serious: Yes (Other)
  Sender: FDA-Public Use
  Company Number: US-WYE-H06388208

PATIENT
  Sex: Female
  Weight: 48.9 kg

DRUGS (12)
  1. TYGACIL [Suspect]
     Indication: ABDOMINAL INFECTION
     Route: 042
     Dates: start: 20081010, end: 20081014
  2. POTASSIUM [Concomitant]
     Dosage: UNKNOWN
     Route: 048
  3. DIGOXIN [Concomitant]
     Dosage: UNKNOWN
     Route: 048
  4. IMDUR [Concomitant]
     Dosage: UNKNOWN
     Route: 048
  5. CLONIDINE [Concomitant]
     Dosage: UNKNOWN
     Route: 048
  6. LORCET-HD [Concomitant]
     Dosage: UNKNOWN
     Route: 048
  7. KLONOPIN [Concomitant]
     Dosage: UNKNWON
     Route: 048
  8. DILTIAZEM [Concomitant]
     Dosage: UNKNOWN
     Route: 048
  9. MAGNESIUM [Concomitant]
     Dosage: UNKNOWN
     Route: 048
  10. TOLTERODINE TARTRATE [Concomitant]
     Dosage: UNKNOWN
     Route: 048
  11. AMBIEN [Concomitant]
     Dosage: UNKNOWN DOSE AT HOUR OF SLEEP
     Route: 048
  12. EFFEXOR XR [Concomitant]
     Indication: DEPRESSION
     Dosage: UNKNOWN
     Route: 048

REACTIONS (1)
  - PLATELET COUNT DECREASED [None]
